FAERS Safety Report 8841002 (Version 1)
Quarter: 2012Q4

REPORT INFORMATION
  Report Type: 
  Country: US (occurrence: US)
  Receive Date: 20121015
  Receipt Date: 20121015
  Transmission Date: 20130627
  Serious: Yes (Hospitalization, Other)
  Sender: FDA-Public Use
  Company Number: US-ELI_LILLY_AND_COMPANY-US201210001340

PATIENT
  Age: 46 None
  Sex: Female

DRUGS (2)
  1. CYMBALTA [Suspect]
     Indication: DEPRESSION
     Dosage: 30 mg, qd
     Dates: start: 20080827, end: 2009
  2. CYMBALTA [Suspect]
     Dosage: 60 mg, qd
     Dates: start: 2009

REACTIONS (12)
  - Aphasia [Unknown]
  - Breast cancer [Unknown]
  - Cataplexy [Unknown]
  - Speech disorder [Unknown]
  - Eyelid function disorder [Unknown]
  - Asthenia [Unknown]
  - Hypotonia [Unknown]
  - Blood pressure decreased [Unknown]
  - Depressed mood [Unknown]
  - Sleep disorder [Unknown]
  - Frustration [Unknown]
  - Crying [Not Recovered/Not Resolved]
